FAERS Safety Report 11170209 (Version 1)
Quarter: 2015Q2

REPORT INFORMATION
  Report Type: Spontaneous
  Country: FR (occurrence: None)
  Receive Date: 20150604
  Receipt Date: 20150604
  Transmission Date: 20150821
  Serious: Yes (Hospitalization, Other)
  Sender: FDA-Public Use
  Company Number: FR-ZYDUS-008301

PATIENT
  Age: 34 Year
  Sex: Female

DRUGS (8)
  1. MORPHINE [Suspect]
     Active Substance: MORPHINE
     Indication: ANALGESIC THERAPY
  2. KETOPROFENE [Suspect]
     Active Substance: KETOPROFEN
     Dosage: 50.00-MG-4.00 TIMES PER-24.0HOURS
  3. ADRENALINE (ADRENALINE) [Concomitant]
  4. NEFOPAM (NEFOPAM) [Concomitant]
  5. PARACETAMOL (PARACETAMOL) [Suspect]
     Active Substance: ACETAMINOPHEN
     Dosage: 1.00-MG-4.00 TIMES PER-1.0DAYS / ORAL
     Route: 048
  6. SUFENTANIL (SUFENTANIL) (UNKNOWN) (SUFENTANIL) [Suspect]
     Active Substance: SUFENTANIL
     Indication: ANALGESIC THERAPY
  7. LIDOCAINE (LIDOCAINE) [Suspect]
     Active Substance: LIDOCAINE
     Indication: ANALGESIC THERAPY
     Dosage: 15.00-ML-
  8. ROPIVACAINE [Suspect]
     Active Substance: ROPIVACAINE
     Indication: ANALGESIC THERAPY

REACTIONS (6)
  - Post procedural haemorrhage [None]
  - Caesarean section [None]
  - Spinal epidural haemorrhage [None]
  - Peripheral nerve injury [None]
  - Gait disturbance [None]
  - Maternal exposure during delivery [None]
